FAERS Safety Report 9301530 (Version 1)
Quarter: 2013Q2

REPORT INFORMATION
  Report Type: Spontaneous
  Country: DE (occurrence: DE)
  Receive Date: 20130521
  Receipt Date: 20130521
  Transmission Date: 20140414
  Serious: Yes (Hospitalization)
  Sender: FDA-Public Use
  Company Number: DE-TEVA-392323ISR

PATIENT
  Age: 43 Year
  Sex: Female
  Weight: 68 kg

DRUGS (3)
  1. PACLITAXEL [Suspect]
     Indication: OVARIAN CANCER
     Dosage: LAST DOSE PRIOR TO SAE 06-FEB-2013
     Route: 042
     Dates: start: 20121219
  2. CARBOPLATIN [Suspect]
     Indication: OVARIAN CANCER
     Dosage: LAST DOSE PRIOR TO SAE 21-MAR-2013 (683.42 MG)
     Route: 042
     Dates: start: 20121219, end: 20130321
  3. BEVACIZUMAB [Suspect]
     Indication: OVARIAN CANCER
     Dosage: LAST DOSE PRIOR TO SAE 06-FEB-2013
     Route: 042
     Dates: start: 20130109, end: 20130320

REACTIONS (3)
  - Catheter site infection [Recovered/Resolved]
  - Embolism [Recovering/Resolving]
  - Fistula [Recovered/Resolved]
